FAERS Safety Report 8369416-5 (Version None)
Quarter: 2012Q2

REPORT INFORMATION
  Report Type: 
  Country: None (occurrence: None)
  Receive Date: 20120518
  Receipt Date: 20120511
  Transmission Date: 20120825
  Serious: Yes (Other)
  Sender: FDA-Public Use
  Company Number: US-PFIZER INC-2012000966

PATIENT
  Sex: Male
  Weight: 68.027 kg

DRUGS (3)
  1. REVATIO [Suspect]
     Dosage: 10 MG, 3X/DAY (CUTTING 20MG TABLETS INTO HALF)
     Dates: start: 20111101, end: 20120511
  2. EPLERENONE [Concomitant]
     Dosage: UNK
  3. REVATIO [Suspect]
     Indication: PULMONARY HYPERTENSION
     Dosage: 20 MG, 3X/DAY
     Dates: start: 20110810

REACTIONS (11)
  - OEDEMA PERIPHERAL [None]
  - RASH ERYTHEMATOUS [None]
  - ABDOMINAL PAIN UPPER [None]
  - ATRIAL FIBRILLATION [None]
  - SKIN EXFOLIATION [None]
  - ASTHENIA [None]
  - INSOMNIA [None]
  - ERYTHEMA [None]
  - EPISTAXIS [None]
  - ABDOMINAL DISCOMFORT [None]
  - DISCOMFORT [None]
